FAERS Safety Report 10891373 (Version 1)
Quarter: 2015Q1

REPORT INFORMATION
  Report Type: Spontaneous
  Country: US (occurrence: US)
  Receive Date: 20150306
  Receipt Date: 20150306
  Transmission Date: 20150721
  Serious: Yes (Other)
  Sender: FDA-Public Use
  Company Number: US-SA-2015SA026168

PATIENT
  Age: 46 Year
  Sex: Female

DRUGS (2)
  1. SOLOSTAR [Concomitant]
     Active Substance: DEVICE
     Indication: TYPE 2 DIABETES MELLITUS
     Dates: start: 2011
  2. LANTUS SOLOSTAR [Suspect]
     Active Substance: INSULIN GLARGINE
     Indication: TYPE 2 DIABETES MELLITUS
     Dosage: DOSE:108 UNIT(S)
     Route: 065
     Dates: start: 2011

REACTIONS (3)
  - Neck surgery [Unknown]
  - Surgery [Unknown]
  - Uterine cancer [Unknown]

NARRATIVE: CASE EVENT DATE: 2011
